FAERS Safety Report 17864265 (Version 1)
Quarter: 2020Q2

REPORT INFORMATION
  Report Type: Spontaneous
  Country: US (occurrence: US)
  Receive Date: 20200604
  Receipt Date: 20200604
  Transmission Date: 20200714
  Serious: Yes (Death, Hospitalization)
  Sender: FDA-Public Use
  Company Number: None

PATIENT
  Age: 66 Year
  Sex: Female
  Weight: 68.03 kg

DRUGS (9)
  1. LEVOPHED [Concomitant]
     Active Substance: NOREPINEPHRINE BITARTRATE
     Dates: start: 20200531, end: 20200602
  2. NEO-SYNEPHRINE [Concomitant]
     Active Substance: PHENYLEPHRINE HYDROCHLORIDE
     Dates: start: 20200531, end: 20200602
  3. FENTANYL DRIP [Concomitant]
     Dates: start: 20200531, end: 20200602
  4. VERSED DRIP [Concomitant]
     Dates: start: 20200531, end: 20200602
  5. MEROPENEM. [Concomitant]
     Active Substance: MEROPENEM
     Dates: start: 20200531, end: 20200602
  6. VANCOMYCIN [Concomitant]
     Active Substance: VANCOMYCIN
     Dates: start: 20200531, end: 20200602
  7. NIMBEX DRIP [Concomitant]
     Dates: start: 20200531, end: 20200602
  8. REMDESIVIR. [Suspect]
     Active Substance: REMDESIVIR
     Indication: COVID-19
     Route: 041
     Dates: start: 20200528, end: 20200602
  9. PRECEDEX [Concomitant]
     Active Substance: DEXMEDETOMIDINE HYDROCHLORIDE
     Dates: start: 20200530, end: 20200531

REACTIONS (3)
  - Condition aggravated [None]
  - General physical health deterioration [None]
  - SARS-CoV-2 test positive [None]

NARRATIVE: CASE EVENT DATE: 20200602
